FAERS Safety Report 16425566 (Version 1)
Quarter: 2019Q2

REPORT INFORMATION
  Report Type: Spontaneous
  Country: US (occurrence: US)
  Receive Date: 20190613
  Receipt Date: 20190613
  Transmission Date: 20190711
  Serious: No
  Sender: FDA-Public Use
  Company Number: US-PFIZER INC-2019249244

PATIENT
  Age: 49 Year
  Sex: Female

DRUGS (1)
  1. BUPRENORPHINE. [Suspect]
     Active Substance: BUPRENORPHINE
     Dosage: UNK

REACTIONS (4)
  - Dysphoria [Unknown]
  - Drug hypersensitivity [Unknown]
  - Confusional state [Unknown]
  - Ataxia [Unknown]

NARRATIVE: CASE EVENT DATE: 20181218
